FAERS Safety Report 18947749 (Version 1)
Quarter: 2021Q1

REPORT INFORMATION
  Report Type: Not Available
  Country: US (occurrence: US)
  Receive Date: 20210226
  Receipt Date: 20210226
  Transmission Date: 20210420
  Serious: Yes (Other)
  Sender: FDA-Public Use
  Company Number: US-NEUROCRINE BIOSCIENCES INC.-2021NBI00748

PATIENT
  Age: 65 Year
  Sex: Female

DRUGS (2)
  1. INGREZZA [Suspect]
     Active Substance: VALBENAZINE
     Indication: TARDIVE DYSKINESIA
     Route: 048
     Dates: start: 20191216, end: 20191222
  2. INGREZZA [Suspect]
     Active Substance: VALBENAZINE
     Route: 048
     Dates: start: 20191223

REACTIONS (7)
  - Head injury [Unknown]
  - Loss of consciousness [Recovered/Resolved]
  - Muscular weakness [Unknown]
  - Pollakiuria [Unknown]
  - Drug ineffective [Unknown]
  - Fall [Unknown]
  - Eye contusion [Unknown]

NARRATIVE: CASE EVENT DATE: 2021
